FAERS Safety Report 16667629 (Version 1)
Quarter: 2019Q3

REPORT INFORMATION
  Report Type: Spontaneous
  Country: CN (occurrence: CN)
  Receive Date: 20190805
  Receipt Date: 20190805
  Transmission Date: 20191004
  Serious: Yes (Other)
  Sender: FDA-Public Use
  Company Number: CN-PFIZER INC-2019328713

PATIENT
  Age: 54 Year
  Sex: Female
  Weight: 90 kg

DRUGS (9)
  1. SODIUM CHLORIDE. [Concomitant]
     Active Substance: SODIUM CHLORIDE
     Indication: VEHICLE SOLUTION USE
     Dosage: 100 ML, 1X/DAY
     Route: 041
     Dates: start: 20190421, end: 20190625
  2. CYCLOPHOSPHAMIDE. [Concomitant]
     Active Substance: CYCLOPHOSPHAMIDE
     Indication: BREAST CANCER
     Dosage: UNK
     Route: 041
     Dates: start: 20190421, end: 20190421
  3. CYCLOPHOSPHAMIDE. [Concomitant]
     Active Substance: CYCLOPHOSPHAMIDE
     Dosage: UNK
     Route: 041
     Dates: start: 20190513, end: 20190513
  4. PHARMORUBICIN [Suspect]
     Active Substance: EPIRUBICIN
     Indication: BREAST CANCER
     Dosage: 80.000 MG, 1X/DAY
     Route: 041
     Dates: start: 20190421, end: 20190421
  5. PHARMORUBICIN [Suspect]
     Active Substance: EPIRUBICIN
     Dosage: 80 MG, 1X/DAY
     Route: 041
     Dates: start: 20190513, end: 20190513
  6. PHARMORUBICIN [Suspect]
     Active Substance: EPIRUBICIN
     Dosage: 80 MG, 1X/DAY
     Route: 041
     Dates: start: 20190624, end: 20190624
  7. CYCLOPHOSPHAMIDE. [Concomitant]
     Active Substance: CYCLOPHOSPHAMIDE
     Dosage: UNK
     Route: 041
     Dates: start: 20190603, end: 20190603
  8. CYCLOPHOSPHAMIDE. [Concomitant]
     Active Substance: CYCLOPHOSPHAMIDE
     Dosage: UNK
     Route: 041
     Dates: start: 20190624, end: 20190624
  9. PHARMORUBICIN [Suspect]
     Active Substance: EPIRUBICIN
     Dosage: 80 MG, 1X/DAY
     Route: 041
     Dates: start: 20190603, end: 20190603

REACTIONS (6)
  - Left ventricular dysfunction [Unknown]
  - Vomiting [Unknown]
  - Sinus bradycardia [Unknown]
  - Cardiotoxicity [Unknown]
  - Electrocardiogram T wave abnormal [Unknown]
  - Nausea [Unknown]

NARRATIVE: CASE EVENT DATE: 20190714
